FAERS Safety Report 17244222 (Version 1)
Quarter: 2020Q1

REPORT INFORMATION
  Report Type: Spontaneous
  Country: US (occurrence: US)
  Receive Date: 20200107
  Receipt Date: 20200107
  Transmission Date: 20200409
  Serious: Yes (Other)
  Sender: FDA-Public Use
  Company Number: US-LUNDBECK-DKLU3009783

PATIENT
  Age: 83 Year
  Sex: Male

DRUGS (2)
  1. NORTHERA [Suspect]
     Active Substance: DROXIDOPA
     Indication: PARKINSON^S DISEASE
     Route: 065
  2. NORTHERA [Suspect]
     Active Substance: DROXIDOPA
     Indication: ORTHOSTATIC HYPOTENSION

REACTIONS (6)
  - Kidney infection [Unknown]
  - Dysphagia [Unknown]
  - Product dose omission [Unknown]
  - Loss of consciousness [Unknown]
  - Product formulation issue [Unknown]
  - Urinary tract infection [Unknown]

NARRATIVE: CASE EVENT DATE: 2019
